FAERS Safety Report 24437268 (Version 1)
Quarter: 2024Q4

REPORT INFORMATION
  Report Type: Spontaneous
  Country: BG (occurrence: BG)
  Receive Date: 20241015
  Receipt Date: 20241015
  Transmission Date: 20250115
  Serious: Yes (Death)
  Sender: ALEXION PHARMACEUTICALS
  Company Number: BG-AstraZeneca-CH-00722908A

PATIENT
  Age: 70 Year

DRUGS (1)
  1. SAPHNELO [Suspect]
     Active Substance: ANIFROLUMAB-FNIA

REACTIONS (1)
  - COVID-19 [Fatal]
